FAERS Safety Report 14070647 (Version 1)
Quarter: 2017Q4

REPORT INFORMATION
  Report Type: Spontaneous
  Country: CN (occurrence: CN)
  Receive Date: 20171010
  Receipt Date: 20171010
  Transmission Date: 20180321
  Serious: Yes (Life-Threatening, Other)
  Sender: FDA-Public Use
  Company Number: CN-PFIZER INC-2017434828

PATIENT
  Age: 5 Year
  Sex: Female
  Weight: 18.5 kg

DRUGS (1)
  1. CEFOPERAZONE SODIUM [Suspect]
     Active Substance: CEFOPERAZONE SODIUM
     Indication: INFECTION
     Dosage: 0.9 G, 2X/DAY
     Route: 041
     Dates: start: 20170819, end: 20170819

REACTIONS (6)
  - Erythema [Unknown]
  - Respiratory rate increased [Recovering/Resolving]
  - Rash maculo-papular [Recovering/Resolving]
  - Drug hypersensitivity [Unknown]
  - Heart rate increased [Recovering/Resolving]
  - Pruritus [Unknown]

NARRATIVE: CASE EVENT DATE: 20170819
